FAERS Safety Report 8954860 (Version 2)
Quarter: 2014Q2

REPORT INFORMATION
  Report Type: Spontaneous
  Country: JP (occurrence: JP)
  Receive Date: 20121207
  Receipt Date: 20140627
  Transmission Date: 20141212
  Serious: Yes (Other)
  Sender: FDA-Public Use
  Company Number: PHHY2012JP112268

PATIENT
  Sex: Female

DRUGS (6)
  1. RITODRINE [Suspect]
     Indication: THREATENED LABOUR
     Dosage: 50 UG PER MIN
     Route: 041
  2. RITODRINE [Suspect]
     Dosage: 100 UG PER MIN
     Route: 041
  3. RITODRINE [Suspect]
     Dosage: 150 UG PER MIN
     Route: 041
  4. RITODRINE [Suspect]
     Dosage: 100 UG PER MIN
     Route: 041
  5. AMPICILLIN [Suspect]
     Indication: INTRAUTERINE INFECTION
     Dosage: 1 G, TID
     Route: 042
  6. MAGNESIUM OXIDE [Suspect]
     Indication: CONSTIPATION
     Dosage: 2 DF, TID
     Route: 048

REACTIONS (7)
  - Hot flush [Recovering/Resolving]
  - Salivary gland enlargement [Recovering/Resolving]
  - Palpitations [Recovering/Resolving]
  - Dysphagia [Recovering/Resolving]
  - Oropharyngeal discomfort [Recovered/Resolved]
  - Hyperamylasaemia [Recovering/Resolving]
  - Maternal exposure during pregnancy [Unknown]
